FAERS Safety Report 8016807-8 (Version None)
Quarter: 2012Q1

REPORT INFORMATION
  Report Type: 
  Country: None (occurrence: None)
  Receive Date: 20120102
  Receipt Date: 20111228
  Transmission Date: 20120608
  Serious: Yes (Hospitalization, Other)
  Sender: FDA-Public Use
  Company Number: NL-BRISTOL-MYERS SQUIBB COMPANY-16284770

PATIENT
  Age: 59 Year
  Sex: Male
  Weight: 76 kg

DRUGS (7)
  1. EMEND [Concomitant]
     Dates: start: 20111121, end: 20111124
  2. ZOFRAN [Concomitant]
     Dates: start: 20111121, end: 20111122
  3. CISPLATIN [Suspect]
     Indication: NON-SMALL CELL LUNG CANCER
     Dosage: RESTARTED:10OCT11.LAST DOSE:29AUG11 INF 4, ON DAY ONE, DAY EIGHT DAY 29 AND DAY 36
     Route: 042
     Dates: start: 20110725, end: 20110829
  4. ETOPOSIDE [Suspect]
     Indication: NON-SMALL CELL LUNG CANCER
     Dosage: RESTARTED:10OCT11.LAST DOSE:26AUG11 INF 10, ON DAYS ONE TO FIVE AND DAYS 29-33
     Route: 042
     Dates: start: 20110725, end: 20110826
  5. DURAGESIC-100 [Concomitant]
     Indication: OESOPHAGITIS
     Dates: start: 20110919, end: 20111125
  6. DEXAMETHASONE [Concomitant]
     Indication: PROPHYLAXIS
     Dates: start: 20111121, end: 20111124
  7. NEXIUM [Concomitant]
     Indication: ABDOMINAL PAIN UPPER
     Dates: start: 20110915

REACTIONS (1)
  - MALAISE [None]
